FAERS Safety Report 19487709 (Version 2)
Quarter: 2021Q3

REPORT INFORMATION
  Report Type: Spontaneous
  Country: US (occurrence: US)
  Receive Date: 20210702
  Receipt Date: 20210709
  Transmission Date: 20211014
  Serious: Yes (Other)
  Sender: FDA-Public Use
  Company Number: US-PFIZER INC-2021757512

PATIENT
  Age: 71 Year
  Sex: Female

DRUGS (1)
  1. ERYTHROMYCIN. [Suspect]
     Active Substance: ERYTHROMYCIN
     Indication: DERMATITIS
     Dosage: 200 MG, 4X/DAY

REACTIONS (2)
  - Hepatotoxicity [Unknown]
  - Hepatitis [Unknown]
